FAERS Safety Report 4706874-9 (Version None)
Quarter: 2005Q3

REPORT INFORMATION
  Report Type: 
  Country: None (occurrence: None)
  Receive Date: 20050706
  Receipt Date: 20041014
  Transmission Date: 20060218
  Serious: Yes (Other)
  Sender: FDA-Public Use
  Company Number: DE-MERCK-0410DEU00472

PATIENT
  Age: 58 Year
  Sex: Male
  Weight: 176 kg

DRUGS (6)
  1. VIOXX [Suspect]
     Indication: INTERVERTEBRAL DISC DISORDER
     Route: 048
     Dates: start: 20020101, end: 20041001
  2. VIOXX [Suspect]
     Route: 048
     Dates: start: 19990101, end: 20020101
  3. METOPROLOL [Concomitant]
     Route: 048
     Dates: start: 19980101
  4. ALLOPURINOL [Concomitant]
     Indication: HYPERURICAEMIA
     Route: 048
     Dates: start: 19950101
  5. IBUPROFEN [Concomitant]
     Route: 065
  6. ANTIPYRINE [Concomitant]
     Indication: MIGRAINE
     Route: 065
     Dates: start: 19990101

REACTIONS (14)
  - BALANCE DISORDER [None]
  - DEAFNESS [None]
  - DEPRESSION [None]
  - DISTURBANCE IN ATTENTION [None]
  - ENCEPHALOPATHY [None]
  - HEADACHE [None]
  - LACUNAR INFARCTION [None]
  - MEMORY IMPAIRMENT [None]
  - POLYNEUROPATHY [None]
  - RETINOPATHY HYPERTENSIVE [None]
  - SPINAL OSTEOARTHRITIS [None]
  - TINNITUS [None]
  - VERTIGO [None]
  - VISUAL FIELD DEFECT [None]
